FAERS Safety Report 7477949-9 (Version None)
Quarter: 2011Q2

REPORT INFORMATION
  Report Type: 
  Country: None (occurrence: None)
  Receive Date: 20110511
  Receipt Date: 20110511
  Transmission Date: 20111010
  Serious: No
  Sender: FDA-Public Use
  Company Number: None

PATIENT
  Sex: Female
  Weight: 71.2147 kg

DRUGS (1)
  1. IMPLANON [Suspect]
     Indication: CONTRACEPTION
     Dosage: SQ
     Route: 058
     Dates: start: 20110415, end: 20110510

REACTIONS (4)
  - IMPLANT SITE RASH [None]
  - IMPLANT SITE REACTION [None]
  - ECZEMA [None]
  - IMPLANT SITE PRURITUS [None]
